FAERS Safety Report 8992111 (Version 1)
Quarter: 2012Q4

REPORT INFORMATION
  Report Type: 
  Country: US (occurrence: US)
  Receive Date: 20121231
  Receipt Date: 20121231
  Transmission Date: 20130627
  Serious: No
  Sender: FDA-Public Use
  Company Number: US-009507513-1212USA010796

PATIENT
  Sex: Male
  Weight: 80.73 kg

DRUGS (3)
  1. PEGINTRON [Suspect]
     Dosage: UNK
  2. RIBASPHERE [Suspect]
  3. RIBAPAK [Suspect]

REACTIONS (12)
  - Anaemia [Unknown]
  - Pain [Unknown]
  - Pain [Unknown]
  - Skin ulcer [Unknown]
  - Musculoskeletal pain [Unknown]
  - Arthralgia [Unknown]
  - Insomnia [Unknown]
  - Dysphagia [Unknown]
  - Oesophagitis [Unknown]
  - Dyspnoea [Unknown]
  - Pruritus [Unknown]
  - Diarrhoea [Unknown]
